FAERS Safety Report 16781178 (Version 1)
Quarter: 2019Q3

REPORT INFORMATION
  Report Type: Spontaneous
  Country: US (occurrence: US)
  Receive Date: 20190717
  Receipt Date: 20190717
  Transmission Date: 20191005
  Serious: No
  Sender: FDA-Public Use
  Company Number: None

PATIENT

DRUGS (1)
  1. SENSORCAINE MPF WITH EPINEPHRINE [Suspect]
     Active Substance: BUPIVACAINE HYDROCHLORIDE\EPINEPHRINE
     Dosage: ?          OTHER DOSE:SOMGLE VIAL 30ML;OTHER ROUTE:INJECTION?

REACTIONS (4)
  - Hypertension [None]
  - Product dispensing error [None]
  - Physical product label issue [None]
  - Wrong product administered [None]
